FAERS Safety Report 11115993 (Version 1)
Quarter: 2015Q2

REPORT INFORMATION
  Report Type: Spontaneous
  Country: US (occurrence: US)
  Receive Date: 20150515
  Receipt Date: 20150515
  Transmission Date: 20150821
  Serious: No
  Sender: FDA-Public Use
  Company Number: US-GLAXOSMITHKLINE-US2015030032

PATIENT
  Age: 48 Year
  Sex: Female

DRUGS (2)
  1. ALLI [Suspect]
     Active Substance: ORLISTAT
     Indication: WEIGHT LOSS DIET
     Dosage: UNK
  2. ALLI [Suspect]
     Active Substance: ORLISTAT
     Dosage: UNK
     Dates: start: 20150215

REACTIONS (6)
  - Drug ineffective [Unknown]
  - Gastrointestinal disorder [Recovered/Resolved]
  - Rectal discharge [Recovered/Resolved]
  - Treatment noncompliance [Unknown]
  - Drug administration error [Unknown]
  - Gastric disorder [Recovered/Resolved]
